FAERS Safety Report 24540904 (Version 4)
Quarter: 2025Q3

REPORT INFORMATION
  Report Type: Spontaneous
  Country: US (occurrence: US)
  Receive Date: 20241023
  Receipt Date: 20250915
  Transmission Date: 20251021
  Serious: No
  Sender: PFIZER
  Company Number: US-PFIZER INC-202400280802

PATIENT
  Age: 88 Year
  Sex: Female

DRUGS (7)
  1. PREMARIN [Suspect]
     Active Substance: ESTROGENS, CONJUGATED
     Indication: Dysuria
     Dosage: ONCE A NIGHT, EVERY NIGHT
     Dates: start: 202410
  2. PREMARIN [Suspect]
     Active Substance: ESTROGENS, CONJUGATED
     Indication: Vulvovaginal pain
  3. CREON [Concomitant]
     Active Substance: PANCRELIPASE AMYLASE\PANCRELIPASE LIPASE\PANCRELIPASE PROTEASE
     Indication: Prophylaxis
     Dosage: 24,000 UNIT CAPSULES WHEN SHE EATS, TAKES UP TO 8 A DAY
  4. LOSARTAN [Concomitant]
     Active Substance: LOSARTAN
     Indication: Hypertension
     Dosage: 50MG TAB ONCE A DAY
  5. TIZANIDINE [Concomitant]
     Active Substance: TIZANIDINE
     Indication: Sciatica
     Dosage: 2MG TAB ONCE A DAY
  6. FENOFIBRATE [Concomitant]
     Active Substance: FENOFIBRATE
     Indication: Blood disorder
     Dosage: 160MG ONCE A DAY
  7. DULOXETINE [Concomitant]
     Active Substance: DULOXETINE
     Indication: Sciatica
     Dosage: 30MG ONCE A DAY

REACTIONS (3)
  - Drug ineffective for unapproved indication [Unknown]
  - Off label use [Unknown]
  - Incorrect dose administered by device [Unknown]

NARRATIVE: CASE EVENT DATE: 20241001
